FAERS Safety Report 17125881 (Version 1)
Quarter: 2019Q4

REPORT INFORMATION
  Report Type: Spontaneous
  Country: CL (occurrence: CL)
  Receive Date: 20191208
  Receipt Date: 20191208
  Transmission Date: 20200122
  Serious: Yes (Other)
  Sender: FDA-Public Use
  Company Number: CL-AMGEN-CHLSP2019202007

PATIENT
  Age: 65 Year
  Sex: Female

DRUGS (1)
  1. PROLIA [Suspect]
     Active Substance: DENOSUMAB
     Indication: OSTEOPOROSIS
     Dosage: 60 MILLIGRAM, Q6MO
     Route: 058
     Dates: start: 2015

REACTIONS (3)
  - Tooth extraction [Recovered/Resolved]
  - Tooth fracture [Recovered/Resolved]
  - Periostitis [Not Recovered/Not Resolved]

NARRATIVE: CASE EVENT DATE: 201805
